FAERS Safety Report 8520534-8 (Version None)
Quarter: 2012Q3

REPORT INFORMATION
  Report Type: 
  Country: None (occurrence: None)
  Receive Date: 20120719
  Receipt Date: 20120707
  Transmission Date: 20120928
  Serious: Yes (Hospitalization)
  Sender: FDA-Public Use
  Company Number: CA-SANOFI-AVENTIS-2012SA048501

PATIENT
  Age: 70 Year
  Sex: Male

DRUGS (7)
  1. PREDNISONE [Suspect]
     Indication: PROSTATE CANCER METASTATIC
     Route: 048
     Dates: start: 20120605, end: 20120605
  2. CABAZITAXEL [Suspect]
     Route: 042
     Dates: start: 20120626, end: 20120626
  3. ASPIRIN [Concomitant]
     Route: 048
     Dates: start: 19910101
  4. EZETIMIBE [Concomitant]
     Route: 048
     Dates: start: 19911201
  5. CABAZITAXEL [Suspect]
     Indication: PROSTATE CANCER METASTATIC
     Route: 042
     Dates: start: 20120605, end: 20120605
  6. SIMVASTATIN [Concomitant]
     Route: 048
     Dates: start: 19911201
  7. BISOPROLOL FUMARATE [Concomitant]
     Route: 048
     Dates: start: 19910101

REACTIONS (1)
  - SMALL INTESTINAL OBSTRUCTION [None]
